FAERS Safety Report 5472450-6 (Version None)
Quarter: 2007Q3

REPORT INFORMATION
  Report Type: 
  Country: None (occurrence: None)
  Receive Date: 20070926
  Receipt Date: 20070913
  Transmission Date: 20080115
  Serious: Yes (Disabling)
  Sender: FDA-Public Use
  Company Number: TCI2006A05329

PATIENT
  Age: 51 Year
  Sex: Female

DRUGS (2)
  1. ACTOS [Suspect]
     Indication: DIABETES MELLITUS
     Dosage: 30 MG (30 MG, 1 D) PER ORAL; 15 MG (15 MG, 1 IN 1 D) PER ORAL
     Route: 048
     Dates: start: 20060408, end: 20060920
  2. GLYBURIDE [Concomitant]

REACTIONS (8)
  - BLOOD GLUCOSE INCREASED [None]
  - GLYCOSYLATED HAEMOGLOBIN INCREASED [None]
  - MACULAR OEDEMA [None]
  - OEDEMA PERIPHERAL [None]
  - RETINOPATHY [None]
  - SCOTOMA [None]
  - VISUAL ACUITY REDUCED [None]
  - WEIGHT FLUCTUATION [None]
